FAERS Safety Report 4546217-7 (Version None)
Quarter: 2005Q1

REPORT INFORMATION
  Report Type: 
  Country: None (occurrence: None)
  Receive Date: 20050106
  Receipt Date: 20040804
  Transmission Date: 20050727
  Serious: Yes (Hospitalization)
  Sender: FDA-Public Use
  Company Number: US-ROCHE-376796

PATIENT
  Age: 14 Year
  Sex: Male

DRUGS (7)
  1. ACCUTANE [Suspect]
     Indication: ACNE
     Route: 048
     Dates: start: 19980615
  2. ACCUTANE [Suspect]
     Route: 048
     Dates: start: 19980615, end: 19990315
  3. AMPICILLIN [Concomitant]
     Route: 048
     Dates: start: 19981030
  4. ALCLOMETASONE DIPROPIONATE [Concomitant]
     Route: 048
  5. METHYLPHENIDATE HCL [Concomitant]
     Route: 048
     Dates: start: 19981124
  6. HYDROCODONE BITARTRATE AND ACETAMINOPHEN [Concomitant]
     Route: 048
     Dates: start: 19990204
  7. LORABID [Concomitant]
     Route: 048
     Dates: start: 19990204

REACTIONS (22)
  - ACNE [None]
  - ARTHRALGIA [None]
  - ARTHROPATHY [None]
  - BACK PAIN [None]
  - BLOOD CHOLESTEROL INCREASED [None]
  - BONE SWELLING [None]
  - COLONIC OBSTRUCTION [None]
  - DIARRHOEA [None]
  - DIVERTICULAR HERNIA [None]
  - DRY EYE [None]
  - HAIR FOLLICLE TUMOUR BENIGN [None]
  - HEADACHE [None]
  - INTESTINAL STENOSIS [None]
  - INTUSSUSCEPTION [None]
  - NAUSEA [None]
  - NEPHROLITHIASIS [None]
  - PAIN [None]
  - PAIN IN EXTREMITY [None]
  - POSTOPERATIVE ADHESION [None]
  - SMALL INTESTINAL OBSTRUCTION [None]
  - SYNOVIAL DISORDER [None]
  - VOMITING [None]
